FAERS Safety Report 9667418 (Version 1)
Quarter: 2013Q4

REPORT INFORMATION
  Report Type: Report from Study
  Country: IT (occurrence: IT)
  Receive Date: 20131104
  Receipt Date: 20131104
  Transmission Date: 20140711
  Serious: Yes (Other)
  Sender: FDA-Public Use
  Company Number: IT-TEVA-442311ISR

PATIENT
  Age: 55 Year
  Sex: Female

DRUGS (7)
  1. DOXORUBICIN NOS [Suspect]
     Indication: MALIGNANT LYMPHOID NEOPLASM
     Dosage: 41.75 UNIT NOT REPORTED
     Route: 065
     Dates: start: 20110722, end: 20110810
  2. BLEOMYCIN [Suspect]
     Indication: MALIGNANT LYMPHOID NEOPLASM
     Dosage: 16.7 UNIT NOT REPORTED
     Route: 065
     Dates: start: 20110722, end: 20110810
  3. VINBLASTINE [Suspect]
     Indication: MALIGNANT LYMPHOID NEOPLASM
     Dosage: 10.02 UNIT NOT REPORTED
     Route: 065
     Dates: start: 20110722, end: 20110810
  4. RITUXIMAB [Suspect]
     Indication: MALIGNANT LYMPHOID NEOPLASM
     Dosage: 626.25 UNIT NOT REPORTED
     Route: 065
     Dates: start: 20110803, end: 20110831
  5. DACARBAZINE [Suspect]
     Indication: MALIGNANT LYMPHOID NEOPLASM
     Dosage: 10.02 UNIT NOT REPORTED
     Route: 065
     Dates: start: 20110722, end: 20110810
  6. ALLOPURINOL [Concomitant]
     Indication: HYPERURICAEMIA
     Dates: start: 20110722, end: 20111209
  7. OMEPRAZOLE [Concomitant]
     Dates: start: 20110722, end: 20111207

REACTIONS (1)
  - Neutropenia [Recovered/Resolved]
